FAERS Safety Report 16541194 (Version 1)
Quarter: 2019Q3

REPORT INFORMATION
  Report Type: Report from Study
  Country: CN (occurrence: CN)
  Receive Date: 20190708
  Receipt Date: 20190708
  Transmission Date: 20191004
  Serious: Yes (Hospitalization, Other)
  Sender: FDA-Public Use
  Company Number: CN-BRISTOL-MYERS SQUIBB COMPANY-BMS-2019-064543

PATIENT
  Age: 71 Year
  Sex: Male

DRUGS (1)
  1. NIVOLUMAB [Suspect]
     Active Substance: NIVOLUMAB
     Indication: NON-SMALL CELL LUNG CANCER
     Dosage: 2.5 MILLIGRAM/KILOGRAM, Q2WK
     Route: 042
     Dates: start: 20190424, end: 201906

REACTIONS (2)
  - Prescribed underdose [Unknown]
  - Liver injury [Unknown]

NARRATIVE: CASE EVENT DATE: 201906
